FAERS Safety Report 7658407-5 (Version None)
Quarter: 2011Q3

REPORT INFORMATION
  Report Type: 
  Country: None (occurrence: None)
  Receive Date: 20110805
  Receipt Date: 20110728
  Transmission Date: 20111222
  Serious: Yes (Other)
  Sender: FDA-Public Use
  Company Number: DK-ASTELLAS-2011JP005264

PATIENT
  Sex: Male

DRUGS (6)
  1. IMURAN [Interacting]
     Indication: LIVER TRANSPLANT REJECTION
     Dosage: UNK
     Route: 048
     Dates: start: 19920707
  2. LAMICTAL [Interacting]
     Indication: EPILEPSY
     Dosage: 500 MG, UNKNOWN/D
     Route: 048
     Dates: start: 19930101
  3. PREDNISOLONE [Interacting]
     Indication: LIVER TRANSPLANT REJECTION
     Dosage: 2.5 MG, UNKNOWN/D
     Route: 048
     Dates: start: 19920707
  4. TACROLIMUS [Suspect]
     Indication: LIVER TRANSPLANT REJECTION
     Dosage: 3 MG, UNKNOWN/D
     Route: 048
     Dates: start: 19920707
  5. CIPROFLAXACIN [Interacting]
     Indication: INFECTION
     Dosage: 1000 MG, UNKNOWN/D
     Route: 048
     Dates: start: 20110414
  6. AMOXICILLIN [Interacting]
     Indication: INFECTION
     Dosage: 1500 MG, UNKNOWN/D
     Route: 048
     Dates: start: 20110414

REACTIONS (4)
  - DIPLOPIA [None]
  - DRUG INTERACTION [None]
  - EPILEPTIC AURA [None]
  - DIZZINESS [None]
